FAERS Safety Report 4507474-6 (Version None)
Quarter: 2004Q4

REPORT INFORMATION
  Report Type: 
  Country: None (occurrence: None)
  Receive Date: 20041118
  Receipt Date: 20041105
  Transmission Date: 20050328
  Serious: Yes (Other)
  Sender: FDA-Public Use
  Company Number: 2004-BP-11463RO

PATIENT
  Age: 66 Year
  Sex: Male

DRUGS (2)
  1. LEUCOVORIN CALCIUM [Suspect]
     Indication: COLORECTAL CANCER
     Dosage: 75 MG/DAY, PO
     Route: 048
     Dates: start: 20040805, end: 20040819
  2. UFT [Suspect]
     Indication: COLORECTAL CANCER
     Dosage: 4 CAPSULES/DAY , PO
     Route: 048
     Dates: start: 20040805, end: 20040819

REACTIONS (1)
  - KAWASAKI'S DISEASE [None]
